FAERS Safety Report 17439362 (Version 1)
Quarter: 2020Q1

REPORT INFORMATION
  Report Type: Spontaneous
  Country: US (occurrence: US)
  Receive Date: 20200219
  Receipt Date: 20200219
  Transmission Date: 20200409
  Serious: Yes (Life-Threatening, Hospitalization, Disabling)
  Sender: FDA-Public Use
  Company Number: None

PATIENT
  Age: 25 Year
  Sex: Male
  Weight: 54.9 kg

DRUGS (1)
  1. DUTASTERIDE. [Suspect]
     Active Substance: DUTASTERIDE
     Indication: ANDROGENETIC ALOPECIA
     Dosage: ?          QUANTITY:30 CAPSULE(S);?
     Route: 048
     Dates: start: 20190729, end: 20190804

REACTIONS (9)
  - Anxiety [None]
  - Depression [None]
  - Loss of libido [None]
  - Anhedonia [None]
  - Muscular weakness [None]
  - Insomnia [None]
  - Tinnitus [None]
  - Skin burning sensation [None]
  - Psychotic disorder [None]

NARRATIVE: CASE EVENT DATE: 20190729
